FAERS Safety Report 9859689 (Version 1)
Quarter: 2014Q1

REPORT INFORMATION
  Report Type: Spontaneous
  Country: US (occurrence: US)
  Receive Date: 20140131
  Receipt Date: 20140131
  Transmission Date: 20141002
  Serious: Yes (Other)
  Sender: FDA-Public Use
  Company Number: US-TEVA-459573USA

PATIENT
  Age: 22 Year
  Sex: Female
  Weight: 49.94 kg

DRUGS (2)
  1. PARAGARD 380A [Suspect]
     Indication: CONTRACEPTION
     Route: 015
     Dates: start: 201209, end: 20140116
  2. LAMICTAL [Concomitant]
     Indication: EPILEPSY

REACTIONS (8)
  - Epilepsy [Not Recovered/Not Resolved]
  - Ectopic pregnancy with contraceptive device [Recovered/Resolved]
  - Drug ineffective [Recovered/Resolved]
  - Haemorrhage [Recovered/Resolved]
  - Vaginal haemorrhage [Not Recovered/Not Resolved]
  - Device expulsion [Recovered/Resolved]
  - Menorrhagia [Recovered/Resolved]
  - Pelvic pain [Recovered/Resolved]
